FAERS Safety Report 5440910-X (Version None)
Quarter: 2007Q3

REPORT INFORMATION
  Report Type: 
  Country: None (occurrence: None)
  Receive Date: 20070831
  Receipt Date: 20070813
  Transmission Date: 20080115
  Serious: Yes (Hospitalization, Other)
  Sender: FDA-Public Use
  Company Number: DE-PFIZER INC-2006053782

PATIENT
  Sex: Female
  Weight: 50 kg

DRUGS (2)
  1. SU-011,248 [Suspect]
     Indication: METASTATIC RENAL CELL CARCINOMA
     Route: 048
     Dates: start: 20051216, end: 20060407
  2. METRONIDAZOLE [Concomitant]
     Route: 048
     Dates: start: 20060401, end: 20060501

REACTIONS (3)
  - DEHYDRATION [None]
  - DIARRHOEA [None]
  - PSEUDOMEMBRANOUS COLITIS [None]
